FAERS Safety Report 26072792 (Version 1)
Quarter: 2025Q4

REPORT INFORMATION
  Report Type: Report from Study
  Country: US (occurrence: US)
  Receive Date: 20251121
  Receipt Date: 20251121
  Transmission Date: 20260119
  Serious: Yes (Other)
  Sender: ABBVIE
  Company Number: US-ABBVIE-6556939

PATIENT
  Age: 29 Year
  Sex: Female

DRUGS (2)
  1. RINVOQ [Suspect]
     Active Substance: UPADACITINIB
     Indication: Product used for unknown indication
     Route: 048
     Dates: start: 20250917
  2. CIBINQO [Suspect]
     Active Substance: ABROCITINIB
     Indication: Product used for unknown indication
     Route: 065

REACTIONS (11)
  - Disability [Recovered/Resolved]
  - Nausea [Unknown]
  - Infection [Recovered/Resolved]
  - Morning sickness [Unknown]
  - Rash [Recovered/Resolved]
  - Discomfort [Recovered/Resolved]
  - Scar [Recovered/Resolved]
  - Movement disorder [Unknown]
  - Eczema [Recovered/Resolved]
  - Mood altered [Unknown]
  - Illness [Unknown]

NARRATIVE: CASE EVENT DATE: 20250101
